FAERS Safety Report 12428055 (Version 1)
Quarter: 2016Q2

REPORT INFORMATION
  Report Type: Spontaneous
  Country: None (occurrence: None)
  Receive Date: 20160601
  Receipt Date: 20160601
  Transmission Date: 20160815
  Serious: No
  Sender: FDA-Public Use
  Company Number: None

PATIENT
  Sex: Female

DRUGS (1)
  1. LIDOCAINE PATCH [Suspect]
     Active Substance: LIDOCAINE
     Dosage: 1-3 PATCHES 12HR ON
     Route: 062

REACTIONS (3)
  - Product adhesion issue [None]
  - Drug effect decreased [None]
  - Product substitution issue [None]
